FAERS Safety Report 9097753 (Version 1)
Quarter: 2013Q1

REPORT INFORMATION
  Report Type: Spontaneous
  Country: US (occurrence: US)
  Receive Date: 20130212
  Receipt Date: 20130212
  Transmission Date: 20140127
  Serious: No
  Sender: FDA-Public Use
  Company Number: US-BAYER-2013-014956

PATIENT
  Age: 59 Year
  Sex: Female
  Weight: 111 kg

DRUGS (4)
  1. ALEVE CAPLET/TABLET,MIDOL EXTENDED RELIEF CAPLET [Suspect]
     Indication: ARTHRITIS
     Dosage: 2 DF, BID
     Route: 048
     Dates: start: 20130121, end: 20130123
  2. ARTHROTEC [DICLOFENAC SODIUM] [Concomitant]
  3. CELEBREX [Concomitant]
  4. LIPITOR [Concomitant]

REACTIONS (2)
  - Drug ineffective [None]
  - Incorrect dose administered [None]
